FAERS Safety Report 21186971 (Version 2)
Quarter: 2022Q3

REPORT INFORMATION
  Report Type: Spontaneous
  Country: US (occurrence: US)
  Receive Date: 20220808
  Receipt Date: 20220830
  Transmission Date: 20221027
  Serious: Yes (Other)
  Sender: FDA-Public Use
  Company Number: US-AMERICAN REGENT INC-2022002297

PATIENT

DRUGS (2)
  1. GLYCOPYRROLATE [Suspect]
     Active Substance: GLYCOPYRROLATE
     Indication: Secretion discharge
     Dosage: UNK
     Route: 065
     Dates: start: 20220729, end: 20220729
  2. GLYCOPYRROLATE [Suspect]
     Active Substance: GLYCOPYRROLATE
     Dosage: UNK UNKNOWN
     Route: 065
     Dates: start: 20220729, end: 20220729

REACTIONS (1)
  - Drug ineffective [Unknown]

NARRATIVE: CASE EVENT DATE: 20220729
